FAERS Safety Report 24066568 (Version 1)
Quarter: 2024Q3

REPORT INFORMATION
  Report Type: Spontaneous
  Country: FR (occurrence: FR)
  Receive Date: 20240709
  Receipt Date: 20240709
  Transmission Date: 20241016
  Serious: Yes (Hospitalization)
  Sender: MYLAN
  Company Number: None

PATIENT
  Age: 68 Year
  Sex: Male
  Weight: 90.5 kg

DRUGS (11)
  1. RAMIPRIL [Suspect]
     Active Substance: RAMIPRIL
     Indication: Acute coronary syndrome
     Dosage: 2.5 MILLIGRAM, QD (PER DAY), SCORED TABLET
     Route: 048
     Dates: start: 202306
  2. PREGABALIN [Suspect]
     Active Substance: PREGABALIN
     Indication: Neuralgia
     Dosage: 150 MILLIGRAM, BID 1-0-1
     Route: 048
     Dates: start: 202304
  3. ATORVASTATIN CALCIUM TRIHYDRATE [Suspect]
     Active Substance: ATORVASTATIN CALCIUM TRIHYDRATE
     Indication: Acute coronary syndrome
     Dosage: 80 MILLIGRAM, QD (PER DAY)
     Route: 048
     Dates: start: 202306
  4. EZETIMIBE [Suspect]
     Active Substance: EZETIMIBE
     Indication: Acute coronary syndrome
     Dosage: 10 MILLIGRAM, QD, PER DAY
     Route: 048
     Dates: start: 202306
  5. BISOPROLOL FUMARATE [Suspect]
     Active Substance: BISOPROLOL FUMARATE
     Indication: Acute coronary syndrome
     Dosage: 1.25 MILLIGRAM, QD, PER DAY
     Route: 048
     Dates: start: 202306
  6. ALFUZOSIN [Suspect]
     Active Substance: ALFUZOSIN
     Indication: Benign prostatic hyperplasia
     Dosage: 10 MILLIGRAM, QD, SR EVERY EVENING
     Route: 048
     Dates: start: 20230405
  7. JARDIANCE [Suspect]
     Active Substance: EMPAGLIFLOZIN
     Indication: Acute coronary syndrome
     Dosage: 10 MILLIGRAM, QD
     Route: 048
     Dates: start: 202306
  8. KARDEGIC [Suspect]
     Active Substance: ASPIRIN DL-LYSINE
     Indication: Acute coronary syndrome
     Dosage: 75 MILLIGRAM, QD/ PER DAY, SACHET
     Route: 048
     Dates: start: 202306
  9. ELIQUIS [Suspect]
     Active Substance: APIXABAN
     Indication: Portal vein thrombosis
     Dosage: 5 MILLIGRAM, BID, 1-0-1
     Route: 048
     Dates: start: 202303
  10. Transipeg [Concomitant]
     Dosage: UNK, SACHET
     Route: 065
  11. METOCLOPRAMIDE [Concomitant]
     Active Substance: METOCLOPRAMIDE
     Dosage: UNK, (LABO SANDOZ), SCORED TABLET
     Route: 065

REACTIONS (1)
  - Lichenoid keratosis [Not Recovered/Not Resolved]

NARRATIVE: CASE EVENT DATE: 20240416
